FAERS Safety Report 4289410-3 (Version None)
Quarter: 2004Q1

REPORT INFORMATION
  Report Type: 
  Country: None (occurrence: None)
  Receive Date: 20040205
  Receipt Date: 20040115
  Transmission Date: 20041129
  Serious: Yes (Other)
  Sender: FDA-Public Use
  Company Number: A03200400122

PATIENT
  Age: 60 Year
  Sex: Male

DRUGS (2)
  1. UROXATRAL [Suspect]
     Indication: BENIGN PROSTATIC HYPERPLASIA
     Dosage: 10 MG OD - ORAL
     Route: 048
     Dates: start: 20031101
  2. METOPROLOL SUCCINATE [Concomitant]

REACTIONS (1)
  - ATRIAL FIBRILLATION [None]
